FAERS Safety Report 5359557-9 (Version None)
Quarter: 2007Q2

REPORT INFORMATION
  Report Type: 
  Country: None (occurrence: None)
  Receive Date: 20070615
  Receipt Date: 20070607
  Transmission Date: 20071010
  Serious: Yes (Other)
  Sender: FDA-Public Use
  Company Number: FR-PFIZER INC-2007047619

PATIENT
  Age: 35 Year
  Sex: Male

DRUGS (3)
  1. LYRICA [Suspect]
  2. DRUG, UNSPECIFIED [Suspect]
  3. CELLCEPT [Concomitant]

REACTIONS (1)
  - CYTOLYTIC HEPATITIS [None]
